FAERS Safety Report 6940289-8 (Version None)
Quarter: 2010Q3

REPORT INFORMATION
  Report Type: 
  Country: None (occurrence: None)
  Receive Date: 20100820
  Receipt Date: 20100816
  Transmission Date: 20110219
  Serious: Yes (Hospitalization)
  Sender: FDA-Public Use
  Company Number: 2010S1000719

PATIENT
  Age: 79 Year
  Sex: Male
  Weight: 82 kg

DRUGS (7)
  1. LIVALO [Suspect]
     Indication: HYPERCHOLESTEROLAEMIA
     Dosage: 2 MG;1X;PO, 2 MG;1X;PO
     Route: 048
     Dates: start: 20050125, end: 20080211
  2. LIVALO [Suspect]
     Indication: HYPERCHOLESTEROLAEMIA
     Dosage: 2 MG;1X;PO, 2 MG;1X;PO
     Route: 048
     Dates: start: 20080212
  3. BEZATOR [Concomitant]
  4. ADALAT [Concomitant]
  5. ACTOS [Concomitant]
  6. MAINTATE [Concomitant]
  7. TANATRIL [Concomitant]

REACTIONS (1)
  - ASTHMA [None]
